FAERS Safety Report 5373295-8 (Version None)
Quarter: 2007Q2

REPORT INFORMATION
  Report Type: 
  Country: None (occurrence: None)
  Receive Date: 20070626
  Receipt Date: 20070626
  Transmission Date: 20071010
  Serious: Yes (Hospitalization)
  Sender: FDA-Public Use
  Company Number: None

PATIENT
  Age: 49 Year
  Sex: Female
  Weight: 98 kg

DRUGS (7)
  1. ZOMETA [Suspect]
     Indication: GLIOBLASTOMA MULTIFORME
     Dosage: 4MG Q12 WEEKS IV
     Route: 042
     Dates: start: 20061212
  2. ZOMETA [Suspect]
     Indication: GLIOBLASTOMA MULTIFORME
     Dosage: 4MG Q12 WEEKS IV
     Route: 042
     Dates: start: 20070306
  3. KEPPRA [Concomitant]
  4. DECADRON [Concomitant]
  5. RITALIN [Concomitant]
  6. CEFTIN [Concomitant]
  7. LISINOPRIL [Concomitant]

REACTIONS (5)
  - BACTERIAL INFECTION [None]
  - CATHETER SITE DISCHARGE [None]
  - CENTRAL NERVOUS SYSTEM INFECTION [None]
  - PURULENCE [None]
  - SUTURE RELATED COMPLICATION [None]
